FAERS Safety Report 4724420-0 (Version None)
Quarter: 2005Q3

REPORT INFORMATION
  Report Type: 
  Country: None (occurrence: None)
  Receive Date: 20050726
  Receipt Date: 20050706
  Transmission Date: 20060218
  Serious: Yes (Death, Hospitalization)
  Sender: FDA-Public Use
  Company Number: FR-ABBOTT-05P-056-0304887-01

PATIENT
  Sex: Male
  Weight: 44 kg

DRUGS (33)
  1. RITONAVIR SOFT GELATIN CAPSULES [Suspect]
     Indication: HIV INFECTION
     Route: 048
     Dates: start: 20050322, end: 20050427
  2. RITONAVIR SOFT GELATIN CAPSULES [Suspect]
     Route: 048
     Dates: start: 20050512, end: 20050525
  3. RITONAVIR SOFT GELATIN CAPSULES [Suspect]
     Route: 048
     Dates: start: 20050616, end: 20050617
  4. VIREAD [Concomitant]
     Indication: HIV INFECTION
     Route: 048
     Dates: start: 20041221
  5. VIREAD [Concomitant]
     Dates: start: 20050512
  6. VIREAD [Concomitant]
     Dates: start: 20050616
  7. LAMIVUDINE [Concomitant]
     Indication: HIV INFECTION
     Route: 048
     Dates: start: 20050322
  8. LAMIVUDINE [Concomitant]
     Route: 048
     Dates: start: 20050512
  9. LAMIVUDINE [Concomitant]
     Route: 048
     Dates: start: 20050616
  10. LOPERAMIDE HYDROCHLORIDE [Concomitant]
     Indication: DIARRHOEA
     Route: 048
     Dates: end: 20050623
  11. POTASSIUM CHLORIDE [Concomitant]
     Indication: HYPOKALAEMIA
     Route: 048
     Dates: end: 20050623
  12. LEVOTHYROXINE SODIUM [Concomitant]
     Indication: HYPOTHYROIDISM
     Dosage: 200 UG
     Route: 048
     Dates: start: 20050407, end: 20050623
  13. FERROUS SULFATE TAB [Concomitant]
     Indication: IRON DEFICIENCY ANAEMIA
     Route: 048
     Dates: start: 20050401, end: 20050623
  14. IMIQUIMOD [Concomitant]
     Indication: MOLLUSCUM CONTAGIOSUM
     Route: 061
     Dates: start: 20050404, end: 20050623
  15. FLUCONAZOLE [Concomitant]
     Indication: CANDIDIASIS
     Route: 042
     Dates: start: 20050403, end: 20050623
  16. NYSTATIN [Concomitant]
     Indication: CANDIDIASIS
     Route: 061
     Dates: start: 20050407, end: 20050623
  17. PAROXETINE HYDROCHLORIDE [Concomitant]
     Indication: DEPRESSION
     Route: 048
     Dates: start: 20050429
  18. PAROXETINE HYDROCHLORIDE [Concomitant]
     Route: 048
     Dates: start: 20050505, end: 20050623
  19. OXYCODONE HCL [Concomitant]
     Indication: DIARRHOEA
     Route: 048
  20. OXYCODONE HCL [Concomitant]
     Route: 048
     Dates: start: 20050403
  21. OXYCODONE HCL [Concomitant]
     Route: 048
     Dates: start: 20050502, end: 20050623
  22. ONDANSETRON HYDROCHLORIDE [Concomitant]
     Indication: VOMITING
     Route: 042
     Dates: start: 20050515, end: 20050623
  23. VANCOMYCIN [Concomitant]
     Indication: LUNG DISORDER
     Route: 042
     Dates: start: 20050430
  24. VANCOMYCIN [Concomitant]
     Route: 042
     Dates: start: 20050518, end: 20050623
  25. PIP/TAZO [Concomitant]
     Indication: LUNG DISORDER
     Route: 042
     Dates: start: 20050518, end: 20050623
  26. ALINIA [Concomitant]
     Indication: GASTROENTERITIS CRYPTOSPORIDIAL
     Route: 048
     Dates: start: 20050519, end: 20050623
  27. CLARITHROMYCIN [Concomitant]
     Indication: GASTROENTERITIS CRYPTOSPORIDIAL
     Route: 042
     Dates: start: 20050519, end: 20050623
  28. BACTRIM [Concomitant]
     Indication: INFECTION PROPHYLAXIS
     Route: 042
     Dates: start: 20050427, end: 20050623
  29. VALACYCLOVIR HCL [Concomitant]
     Indication: ANTIVIRAL PROPHYLAXIS
     Route: 042
     Dates: start: 20050428, end: 20050623
  30. METOPIMAZINE [Concomitant]
     Indication: PROPHYLAXIS OF NAUSEA AND VOMITING
     Route: 042
     Dates: start: 20050505, end: 20050623
  31. TMC114 [Concomitant]
     Indication: HIV INFECTION
     Route: 048
     Dates: start: 20050322, end: 20050427
  32. TMC114 [Concomitant]
     Route: 048
     Dates: start: 20050512, end: 20050525
  33. TMC114 [Concomitant]
     Route: 048
     Dates: start: 20050616, end: 20050617

REACTIONS (5)
  - BACTERIAL SEPSIS [None]
  - CONFUSIONAL STATE [None]
  - GASTROENTERITIS CRYPTOSPORIDIAL [None]
  - METABOLIC ACIDOSIS [None]
  - SEPSIS [None]
